FAERS Safety Report 8401308-5 (Version None)
Quarter: 2012Q2

REPORT INFORMATION
  Report Type: 
  Country: None (occurrence: None)
  Receive Date: 20120530
  Receipt Date: 20120530
  Transmission Date: 20120825
  Serious: Yes (Life-Threatening)
  Sender: FDA-Public Use
  Company Number: None

PATIENT
  Age: 86 Year
  Sex: Male
  Weight: 74.8435 kg

DRUGS (3)
  1. RAPALFO 8MG (WATSON) [Suspect]
     Dosage: 1 PER DAY
     Dates: start: 20120301, end: 20120304
  2. COUMADIN [Concomitant]
  3. ZYGENERICS [Concomitant]

REACTIONS (2)
  - ASTHENIA [None]
  - DIZZINESS [None]
